FAERS Safety Report 4678918-4 (Version None)
Quarter: 2005Q2

REPORT INFORMATION
  Report Type: 
  Country: None (occurrence: None)
  Receive Date: 20050531
  Receipt Date: 20050513
  Transmission Date: 20051028
  Serious: No
  Sender: FDA-Public Use
  Company Number: 214501

PATIENT
  Age: 2 Year
  Sex: Female
  Weight: 10.7 kg

DRUGS (11)
  1. NUTROPIN AQ [Suspect]
     Indication: RENAL FAILURE CHRONIC
     Dosage: 0.5 MG, QD,
     Dates: start: 20040115, end: 20050427
  2. PHENOBARBITAL TAB [Concomitant]
  3. METOCLOPRAMIDE (METOCLOPRAMIDE HYDROCHLORIDE) [Concomitant]
  4. PREVACID [Concomitant]
  5. CALCITRIOL [Concomitant]
  6. EPO (EPOETIN ALFA) [Concomitant]
  7. SODIUM CHLORIDE 0.9% [Concomitant]
  8. MULTIVITAMIN (MULTIVITAMINS NOS) [Concomitant]
  9. FLOVENT [Concomitant]
  10. POTASSIUM CHLORIDE [Concomitant]
  11. FERROUS SULFATE TAB [Concomitant]

REACTIONS (1)
  - EPIPHYSEAL DISORDER [None]
